FAERS Safety Report 9070471 (Version 1)
Quarter: 2013Q1

REPORT INFORMATION
  Report Type: Spontaneous
  Country: JP (occurrence: JP)
  Receive Date: 20130215
  Receipt Date: 20130215
  Transmission Date: 20140127
  Serious: Yes (Death)
  Sender: FDA-Public Use
  Company Number: JP-JNJFOC-20121213778

PATIENT
  Age: 89 Year
  Sex: Male

DRUGS (6)
  1. DUROTEP MT [Suspect]
     Indication: CANCER PAIN
     Route: 062
     Dates: start: 20121217
  2. DUROTEP MT [Suspect]
     Indication: CANCER PAIN
     Route: 062
     Dates: start: 20130109
  3. DEPAS [Concomitant]
     Route: 048
  4. ALLELOCK [Concomitant]
     Route: 048
  5. PREDNISOLONE [Concomitant]
     Route: 048
  6. OXINORM (OXYCODONE HYDROCHLORIDE) [Concomitant]
     Route: 048

REACTIONS (2)
  - Gastric cancer [Fatal]
  - Application site dermatitis [Recovering/Resolving]
